FAERS Safety Report 6878494-1 (Version None)
Quarter: 2010Q3

REPORT INFORMATION
  Report Type: 
  Country: None (occurrence: None)
  Receive Date: 20100728
  Receipt Date: 20100720
  Transmission Date: 20110219
  Serious: No
  Sender: FDA-Public Use
  Company Number: US-B.I. PHARMACEUTICALS,INC./RIDGEFIELD-2010-BP-02047BP

PATIENT
  Sex: Female
  Weight: 83.91 kg

DRUGS (1)
  1. MIRAPEX [Suspect]
     Indication: RESTLESS LEGS SYNDROME
     Route: 048
     Dates: start: 20000801, end: 20100325

REACTIONS (14)
  - ASTHMA [None]
  - BINGE EATING [None]
  - BIPOLAR DISORDER [None]
  - BIPOLAR I DISORDER [None]
  - DEPRESSION [None]
  - DIABETES MELLITUS [None]
  - DYSPNOEA [None]
  - EMOTIONAL DISTRESS [None]
  - IMPULSE-CONTROL DISORDER [None]
  - OVERWEIGHT [None]
  - PATHOLOGICAL GAMBLING [None]
  - SLEEP APNOEA SYNDROME [None]
  - THYROID DISORDER [None]
  - WEIGHT INCREASED [None]
